FAERS Safety Report 7167846-0 (Version None)
Quarter: 2010Q4

REPORT INFORMATION
  Report Type: 
  Country: None (occurrence: None)
  Receive Date: 20101202
  Receipt Date: 20101116
  Transmission Date: 20110411
  Serious: Yes (Hospitalization)
  Sender: FDA-Public Use
  Company Number: 2010004607

PATIENT
  Age: 59 Year
  Sex: Female

DRUGS (2)
  1. ERLOTINIB HYDROCHLORIDE [Suspect]
     Indication: NON-SMALL CELL LUNG CANCER
     Dosage: (100,QD),ORAL
     Route: 048
     Dates: start: 20100610, end: 20101007
  2. PERTUZUMAB [Suspect]
     Indication: NON-SMALL CELL LUNG CANCER
     Dosage: (420,1 IN 21 D),INTRAVENOUS
     Route: 042
     Dates: start: 20100630

REACTIONS (5)
  - BLOOD POTASSIUM DECREASED [None]
  - DIARRHOEA [None]
  - NAUSEA [None]
  - PNEUMATOSIS INTESTINALIS [None]
  - RASH [None]
